FAERS Safety Report 8504072-4 (Version None)
Quarter: 2012Q3

REPORT INFORMATION
  Report Type: 
  Country: None (occurrence: None)
  Receive Date: 20120702
  Receipt Date: 20120615
  Transmission Date: 20120928
  Serious: Yes (Hospitalization)
  Sender: FDA-Public Use
  Company Number: 20120391

PATIENT
  Age: 26 Year
  Sex: Female

DRUGS (1)
  1. VENOFER [Suspect]
     Indication: ANAEMIA OF PREGNANCY
     Dosage: 1100 MG INTRAVENOUS
     Route: 042
     Dates: start: 20120603, end: 20120603

REACTIONS (10)
  - PARAESTHESIA [None]
  - BLOOD ALKALINE PHOSPHATASE INCREASED [None]
  - LOSS OF CONSCIOUSNESS [None]
  - ASPARTATE AMINOTRANSFERASE INCREASED [None]
  - ACCIDENTAL OVERDOSE [None]
  - DIARRHOEA [None]
  - MALAISE [None]
  - URTICARIA [None]
  - SKIN DISCOLOURATION [None]
  - MEDICATION ERROR [None]
